FAERS Safety Report 4394847-8 (Version None)
Quarter: 2004Q3

REPORT INFORMATION
  Report Type: 
  Country: None (occurrence: None)
  Receive Date: 20040707
  Receipt Date: 20040623
  Transmission Date: 20050211
  Serious: Yes (Hospitalization)
  Sender: FDA-Public Use
  Company Number: 04P-056-0264668-00

PATIENT
  Age: 89 Year
  Sex: Female

DRUGS (6)
  1. ISOPTIN SR [Suspect]
     Indication: HYPERTENSION
     Dosage: 240 MG, 1 IN 1 D, PER ORAL
     Route: 048
     Dates: end: 20040112
  2. ACETAMINOPHEN [Concomitant]
  3. FLUDER [Concomitant]
  4. TIANEPTINE [Concomitant]
  5. BROMAZEPAM [Concomitant]
  6. KETOPROFEN [Concomitant]

REACTIONS (5)
  - CARDIAC FAILURE [None]
  - FALL [None]
  - HYPOKALAEMIA [None]
  - ORTHOSTATIC HYPOTENSION [None]
  - RENAL FAILURE [None]
